FAERS Safety Report 4277432-8 (Version None)
Quarter: 2004Q1

REPORT INFORMATION
  Report Type: 
  Country: None (occurrence: None)
  Receive Date: 20040122
  Receipt Date: 20040112
  Transmission Date: 20041129
  Serious: Yes (Hospitalization)
  Sender: FDA-Public Use
  Company Number: NO-BRISTOL-MYERS SQUIBB COMPANY-12476784

PATIENT
  Age: 55 Year
  Sex: Male

DRUGS (2)
  1. PRAVACHOL [Suspect]
     Indication: HYPERCHOLESTEROLAEMIA
     Route: 048
     Dates: start: 20020501, end: 20020601
  2. ALBYL-E [Concomitant]

REACTIONS (1)
  - GUILLAIN-BARRE SYNDROME [None]
